FAERS Safety Report 8934846 (Version 1)
Quarter: 2012Q4

REPORT INFORMATION
  Report Type: 
  Country: US (occurrence: US)
  Receive Date: 20121129
  Receipt Date: 20121129
  Transmission Date: 20130627
  Serious: Yes (Other)
  Sender: FDA-Public Use
  Company Number: US-ENDO PHARMACEUTICALS INC.-PROP20120076

PATIENT
  Sex: Female

DRUGS (1)
  1. ACETAMINOPHEN\PROPOXYPHENE NAPSYLATE [Suspect]
     Indication: PAIN
     Dosage: UNKNOWN
     Route: 048

REACTIONS (3)
  - Arrhythmia [Unknown]
  - Bundle branch block [Unknown]
  - Cardiac disorder [Unknown]
